FAERS Safety Report 7448060-8 (Version None)
Quarter: 2011Q2

REPORT INFORMATION
  Report Type: 
  Country: None (occurrence: None)
  Receive Date: 20110429
  Receipt Date: 20100405
  Transmission Date: 20111010
  Serious: No
  Sender: FDA-Public Use
  Company Number: US-ASTRAZENECA-2010SE14857

PATIENT
  Sex: Female

DRUGS (5)
  1. PRILOSEC [Suspect]
     Route: 048
  2. XANTAC [Concomitant]
  3. PREVACID [Concomitant]
  4. NEXIUM [Suspect]
     Route: 048
  5. PEPCID [Concomitant]

REACTIONS (3)
  - URTICARIA [None]
  - DIZZINESS [None]
  - MULTIPLE ALLERGIES [None]
